FAERS Safety Report 7730583-5 (Version None)
Quarter: 2011Q3

REPORT INFORMATION
  Report Type: 
  Country: None (occurrence: None)
  Receive Date: 20110906
  Receipt Date: 20110826
  Transmission Date: 20111222
  Serious: Yes (Other)
  Sender: FDA-Public Use
  Company Number: DE-TEVA-298398GER

PATIENT
  Sex: Female
  Weight: 53 kg

DRUGS (1)
  1. CARBIDOPA + LEVODOPA [Suspect]
     Indication: RESTLESS LEGS SYNDROME
     Dosage: 2 DOSAGE FORMS; 1 DF= 100 MG LEVODOPA + 25 MG CARBIDOPA
     Route: 048
     Dates: start: 20100504, end: 20100511

REACTIONS (1)
  - ABORTION SPONTANEOUS [None]
